FAERS Safety Report 4708259-8 (Version None)
Quarter: 2005Q3

REPORT INFORMATION
  Report Type: 
  Country: None (occurrence: None)
  Receive Date: 20050707
  Receipt Date: 20050411
  Transmission Date: 20060218
  Serious: Yes (Other)
  Sender: FDA-Public Use
  Company Number: PHEH2005US04197

PATIENT
  Age: 46 Year
  Sex: Female

DRUGS (3)
  1. TEGRETOL-XR [Suspect]
     Indication: CONVULSION
     Dosage: 400 MG, BID
     Route: 048
  2. CITALOPRAM HYDROBROMIDE [Suspect]
     Indication: DEPRESSION
     Dosage: 20 MG, QD
     Route: 048
  3. CELEXA [Concomitant]

REACTIONS (4)
  - AURA [None]
  - CHOLECYSTECTOMY [None]
  - DRUG INTERACTION [None]
  - GRAND MAL CONVULSION [None]
